FAERS Safety Report 6214113-5 (Version None)
Quarter: 2009Q2

REPORT INFORMATION
  Report Type: 
  Country: None (occurrence: None)
  Receive Date: 20090604
  Receipt Date: 20090522
  Transmission Date: 20091009
  Serious: Yes (Other)
  Sender: FDA-Public Use
  Company Number: JP-ROCHE-633894

PATIENT
  Age: 49 Year
  Sex: Male

DRUGS (5)
  1. CELLCEPT [Suspect]
     Route: 048
  2. TACROLIMUS [Concomitant]
     Dosage: DOSE FORM: ORAL FORMULATION (NOT OTHERWISE SPECIFIED).
     Route: 048
  3. MEDROL [Concomitant]
     Route: 048
  4. DIOVAN [Concomitant]
     Route: 048
  5. CARVEDILOL [Concomitant]
     Route: 048

REACTIONS (2)
  - AORTIC DISSECTION [None]
  - RENAL IMPAIRMENT [None]
